FAERS Safety Report 12536956 (Version 2)
Quarter: 2016Q3

REPORT INFORMATION
  Report Type: Spontaneous
  Country: GR (occurrence: GR)
  Receive Date: 20160707
  Receipt Date: 20160713
  Transmission Date: 20161109
  Serious: Yes (Other)
  Sender: FDA-Public Use
  Company Number: GR-JNJFOC-20160704117

PATIENT
  Age: 50 Year
  Sex: Male

DRUGS (1)
  1. XEPLION [Suspect]
     Active Substance: PALIPERIDONE PALMITATE
     Indication: ALCOHOLIC PSYCHOSIS
     Route: 030

REACTIONS (3)
  - Product use issue [Unknown]
  - Delirium [Unknown]
  - Off label use [Unknown]
